FAERS Safety Report 24598026 (Version 7)
Quarter: 2025Q1

REPORT INFORMATION
  Report Type: Report from Study
  Country: CA (occurrence: CA)
  Receive Date: 20241110
  Receipt Date: 20250219
  Transmission Date: 20250409
  Serious: Yes (Other)
  Sender: NOVARTIS
  Company Number: CA-002147023-NVSC2023CA012453

PATIENT
  Age: 42 Year
  Sex: Female

DRUGS (4)
  1. COSENTYX [Suspect]
     Active Substance: SECUKINUMAB
     Indication: Ankylosing spondylitis
     Dosage: 150 MG, QMO
     Route: 058
     Dates: start: 20221217
  2. COSENTYX [Suspect]
     Active Substance: SECUKINUMAB
     Route: 065
     Dates: start: 20230107
  3. COSENTYX [Suspect]
     Active Substance: SECUKINUMAB
     Dosage: 300 MG, QMO
     Route: 058
  4. DICLOFENAC SODIUM [Concomitant]
     Active Substance: DICLOFENAC SODIUM
     Indication: Product used for unknown indication
     Dosage: UNK, BID
     Route: 048

REACTIONS (15)
  - Clostridium difficile infection [Recovered/Resolved]
  - Immunodeficiency [Unknown]
  - Back pain [Unknown]
  - Sinusitis [Recovered/Resolved]
  - Pain [Unknown]
  - Dactylitis [Unknown]
  - Bronchitis [Recovering/Resolving]
  - Sinusitis [Unknown]
  - Fatigue [Unknown]
  - Arthralgia [Unknown]
  - Diarrhoea [Not Recovered/Not Resolved]
  - Pyrexia [Unknown]
  - Abdominal pain [Unknown]
  - Infection [Unknown]
  - Selective IgA immunodeficiency [Unknown]

NARRATIVE: CASE EVENT DATE: 20230101
